FAERS Safety Report 8075864-3 (Version None)
Quarter: 2012Q1

REPORT INFORMATION
  Report Type: 
  Country: None (occurrence: None)
  Receive Date: 20120127
  Receipt Date: 20120124
  Transmission Date: 20120608
  Serious: Yes (Other)
  Sender: FDA-Public Use
  Company Number: US-PFIZER INC-2012020418

PATIENT
  Sex: Female
  Weight: 89.342 kg

DRUGS (2)
  1. LISINOPRIL [Concomitant]
     Indication: HYPERTENSION
     Dosage: 10 MG, DAILY
  2. LIPITOR [Suspect]
     Indication: AORTIC ARTERIOSCLEROSIS
     Dosage: 10 MG, DAILY
     Dates: start: 20110701

REACTIONS (2)
  - THYROID NEOPLASM [None]
  - MYALGIA [None]
